FAERS Safety Report 6195671-6 (Version None)
Quarter: 2009Q2

REPORT INFORMATION
  Report Type: 
  Country: None (occurrence: None)
  Receive Date: 20090519
  Receipt Date: 20090511
  Transmission Date: 20091009
  Serious: Yes (Other)
  Sender: FDA-Public Use
  Company Number: US-AMGEN-KDL346427

PATIENT
  Sex: Male

DRUGS (17)
  1. ARANESP [Suspect]
     Indication: DIALYSIS
     Route: 058
  2. EPOGEN [Suspect]
     Indication: DIALYSIS
     Route: 058
     Dates: start: 20080716
  3. SENSIPAR [Concomitant]
     Indication: HYPERPARATHYROIDISM SECONDARY
     Dates: end: 20080716
  4. COZAAR [Concomitant]
  5. AMBIEN [Concomitant]
  6. RENAL SOFT GEL [Concomitant]
  7. COZAAR [Concomitant]
  8. ALBUTEROL [Concomitant]
  9. ASCORBIC ACID [Concomitant]
  10. MEGACE [Concomitant]
  11. CALCITRIOL [Concomitant]
  12. TRAZODONE HCL [Concomitant]
  13. NEPHRON FA [Concomitant]
     Route: 048
  14. PHOSLO [Concomitant]
     Route: 048
  15. CLONIDINE [Concomitant]
  16. AMBIEN [Concomitant]
     Route: 048
  17. NORVASC [Concomitant]

REACTIONS (1)
  - DRUG INEFFECTIVE [None]
